FAERS Safety Report 14618538 (Version 3)
Quarter: 2020Q1

REPORT INFORMATION
  Report Type: Report from Study
  Country: US (occurrence: US)
  Receive Date: 20180309
  Receipt Date: 20200108
  Transmission Date: 20200409
  Serious: Yes (Hospitalization, Disabling, Other)
  Sender: FDA-Public Use
  Company Number: US-ASPEN-GLO2018US001900

PATIENT

DRUGS (20)
  1. METHOTREXATE. [Suspect]
     Active Substance: METHOTREXATE
     Indication: ACUTE LYMPHOCYTIC LEUKAEMIA
     Dosage: 15 MG ON DAY 1,8,15,22
     Route: 037
     Dates: start: 20170510
  2. PEGASPARGASE [Suspect]
     Active Substance: PEGASPARGASE
     Dosage: 4475 IU ON DAY 15 AND 93
     Route: 042
     Dates: start: 20170506
  3. MERCAPTOPURINE. [Suspect]
     Active Substance: MERCAPTOPURINE
     Indication: ACUTE LYMPHOCYTIC LEUKAEMIA
     Dosage: 125 MG X2 DAYS A WEEK
     Route: 048
     Dates: start: 20170619, end: 20170726
  4. CYCLOPHOSPHAMIDE. [Suspect]
     Active Substance: CYCLOPHOSPHAMIDE
     Indication: ACUTE LYMPHOCYTIC LEUKAEMIA
     Dosage: 1790 MG ONCE A MONTH
     Route: 042
     Dates: start: 20170719
  5. INCB018424 [Suspect]
     Active Substance: RUXOLITINIB
     Indication: ACUTE LYMPHOCYTIC LEUKAEMIA
     Dosage: 90 MG, BID
     Route: 048
     Dates: start: 20170619, end: 20170726
  6. VINCRISTINE [Suspect]
     Active Substance: VINCRISTINE
     Dosage: 2 MG DAY 50 OF DELAYED INTENSIFICATION
     Route: 042
     Dates: start: 20180112
  7. VINCRISTINE [Suspect]
     Active Substance: VINCRISTINE
     Dosage: 2 MG DAY 43
     Route: 042
  8. VINCRISTINE [Suspect]
     Active Substance: VINCRISTINE
     Indication: ACUTE LYMPHOCYTIC LEUKAEMIA
     Dosage: 2 MG ON DAY 15, 22,43, 50
     Route: 042
     Dates: start: 20170503
  9. VINCRISTINE [Suspect]
     Active Substance: VINCRISTINE
     Dosage: 2 MG DAY 43
     Route: 042
     Dates: start: 20170603, end: 20171221
  10. INCB018424 [Suspect]
     Active Substance: RUXOLITINIB
     Dosage: 90 MG, BID
     Route: 048
     Dates: start: 20170829
  11. INCB018424 [Suspect]
     Active Substance: RUXOLITINIB
     Dosage: 95 MG, BID DAY 1 OF INTERIM MAINTENANCE 2
     Route: 048
     Dates: start: 20180111
  12. CYTARABINE. [Suspect]
     Active Substance: CYTARABINE
     Indication: ACUTE LYMPHOCYTIC LEUKAEMIA
     Dosage: 137.25 MG
     Route: 042
     Dates: start: 20170829
  13. CYTARABINE. [Suspect]
     Active Substance: CYTARABINE
     Dosage: 137.25 MG, UNK
     Route: 042
     Dates: start: 20170505, end: 20170726
  14. TIOGUANINE [Suspect]
     Active Substance: THIOGUANINE ANHYDROUS
     Indication: ACUTE LYMPHOCYTIC LEUKAEMIA
     Dosage: 60 MG FOR 6 DAYS DAY 29-42 WEEKLY
     Route: 048
     Dates: start: 20171207, end: 20171220
  15. TIOGUANINE [Suspect]
     Active Substance: THIOGUANINE ANHYDROUS
     Dosage: 40 MG FOR 1 DAY DAYS 29-42 WEEKLY
     Route: 048
     Dates: start: 20171207, end: 20171220
  16. MERCAPTOPURINE. [Suspect]
     Active Substance: MERCAPTOPURINE
     Dosage: 100 MG X5 DAYS A WEEK
     Route: 065
     Dates: start: 20170619, end: 20170726
  17. MERCAPTOPURINE. [Suspect]
     Active Substance: MERCAPTOPURINE
     Dosage: 100 MG X5 DAYS A WEEK
     Route: 048
     Dates: start: 20170829
  18. PEGASPARGASE [Suspect]
     Active Substance: PEGASPARGASE
     Indication: ACUTE LYMPHOCYTIC LEUKAEMIA
     Dosage: 4475 IU DAY 2 OF INTERIM MAINTENANCE 2
     Route: 042
     Dates: start: 20180112
  19. PEGASPARGASE [Suspect]
     Active Substance: PEGASPARGASE
     Dosage: UNK
  20. MERCAPTOPURINE. [Suspect]
     Active Substance: MERCAPTOPURINE
     Dosage: 125 MG X2 DAYS A WEEK
     Route: 048
     Dates: start: 20170829

REACTIONS (8)
  - Bacterial infection [Recovered/Resolved]
  - Perirectal abscess [Recovered/Resolved]
  - Sepsis [Recovered/Resolved]
  - Cellulitis [Recovered/Resolved]
  - Febrile neutropenia [Recovered/Resolved]
  - Encopresis [Unknown]
  - Encopresis [Recovered/Resolved]
  - Febrile neutropenia [Recovered/Resolved]

NARRATIVE: CASE EVENT DATE: 20170724
